FAERS Safety Report 17842532 (Version 7)
Quarter: 2022Q1

REPORT INFORMATION
  Report Type: Report from Study
  Country: US (occurrence: US)
  Receive Date: 20200529
  Receipt Date: 20220112
  Transmission Date: 20220423
  Serious: No
  Sender: FDA-Public Use
  Company Number: None

PATIENT
  Sex: Male

DRUGS (2)
  1. ENTRESTO [Suspect]
     Active Substance: SACUBITRIL\VALSARTAN
     Indication: Product used for unknown indication
     Dosage: 100 MG, BID (49/51 MG)
     Route: 048
     Dates: start: 202003
  2. ENTRESTO [Suspect]
     Active Substance: SACUBITRIL\VALSARTAN
     Dosage: 50 MG, BID (24/26 MG)
     Route: 048
     Dates: start: 20211114

REACTIONS (7)
  - Cancer fatigue [Unknown]
  - Aphonia [Unknown]
  - Throat clearing [Unknown]
  - Dysphonia [Recovering/Resolving]
  - Nasal congestion [Recovering/Resolving]
  - Headache [Unknown]
  - Cough [Recovering/Resolving]
